FAERS Safety Report 6613489-4 (Version None)
Quarter: 2010Q1

REPORT INFORMATION
  Report Type: 
  Country: None (occurrence: None)
  Receive Date: 20100304
  Receipt Date: 20100223
  Transmission Date: 20100710
  Serious: Yes (Other)
  Sender: FDA-Public Use
  Company Number: BR-JNJFOC-20100210852

PATIENT
  Sex: Female

DRUGS (2)
  1. ORTHO EVRA [Suspect]
     Indication: CONTRACEPTION
     Dosage: ETHINYL ESTRADIOL 0.6 MG/ NORELGESTROMIN 6 MG
     Route: 062
  2. OMEPRAZOLE [Interacting]
     Indication: GASTRIC DISORDER
     Route: 065

REACTIONS (4)
  - ABDOMINAL PAIN [None]
  - DRUG INTERACTION [None]
  - GASTRITIS [None]
  - VAGINAL HAEMORRHAGE [None]
